FAERS Safety Report 15160675 (Version 2)
Quarter: 2018Q3

REPORT INFORMATION
  Report Type: Report from Study
  Country: GB (occurrence: GB)
  Receive Date: 20180718
  Receipt Date: 20180814
  Transmission Date: 20181010
  Serious: Yes (Hospitalization)
  Sender: FDA-Public Use
  Company Number: GB-ROCHE-2154445

PATIENT
  Sex: Female

DRUGS (2)
  1. ROACTEMRA [Suspect]
     Active Substance: TOCILIZUMAB
     Indication: RHEUMATOID ARTHRITIS
     Route: 058
     Dates: start: 20150928
  2. METOJECT [Concomitant]
     Active Substance: METHOTREXATE SODIUM
     Route: 065

REACTIONS (3)
  - Enteritis infectious [Unknown]
  - Condition aggravated [Unknown]
  - Systemic lupus erythematosus [Unknown]
